FAERS Safety Report 8773189 (Version 2)
Quarter: 2012Q4

REPORT INFORMATION
  Report Type: 
  Country: PL (occurrence: PL)
  Receive Date: 20120907
  Receipt Date: 20121025
  Transmission Date: 20130627
  Serious: Yes (Hospitalization)
  Sender: FDA-Public Use
  Company Number: PL-SANOFI-AVENTIS-2012SA063062

PATIENT
  Age: 45 Year
  Sex: Male
  Weight: 53 kg

DRUGS (5)
  1. ARAVA [Suspect]
     Indication: RHEUMATOID ARTHRITIS
     Route: 048
     Dates: start: 20120522
  2. MOVALIS [Concomitant]
     Indication: SERONEGATIVE RHEUMATOID ARTHRITIS
     Dates: start: 20120131
  3. ORTANOL [Concomitant]
     Indication: SERONEGATIVE RHEUMATOID ARTHRITIS
     Dosage: in the morning
     Dates: start: 20120131
  4. LISIPROL [Concomitant]
     Indication: ESSENTIAL HYPERTENSION
     Dates: start: 20120131
  5. METHYLPREDNISOLONE [Concomitant]
     Dates: start: 20120131

REACTIONS (3)
  - Drug intolerance [Unknown]
  - Vomiting [Recovering/Resolving]
  - Diarrhoea [Recovering/Resolving]
